FAERS Safety Report 25893503 (Version 1)
Quarter: 2025Q4

REPORT INFORMATION
  Report Type: Spontaneous
  Country: US (occurrence: US)
  Receive Date: 20251008
  Receipt Date: 20251008
  Transmission Date: 20260117
  Serious: Yes (Hospitalization, Other)
  Sender: AUROBINDO
  Company Number: US-MLMSERVICE-20250919-PI650506-00082-1

PATIENT
  Age: 33 Year
  Sex: Female

DRUGS (9)
  1. CARBOPLATIN [Suspect]
     Active Substance: CARBOPLATIN
     Indication: Invasive ductal breast carcinoma
     Dosage: 500 MILLIGRAM 9INDUCTION CHEMOTHERAPY REGIMEN)
     Route: 042
     Dates: start: 20220209
  2. CARBOPLATIN [Suspect]
     Active Substance: CARBOPLATIN
     Indication: Hormone receptor positive breast cancer
     Dosage: 500 MILLIGRAM (EVERY 21 DAYS)
     Route: 042
     Dates: start: 20220302, end: 20220526
  3. DOCETAXEL [Suspect]
     Active Substance: DOCETAXEL
     Indication: Invasive ductal breast carcinoma
     Dosage: 135 MILLIGRAM (INDUCTION CHEMOTHERAPY REGIMEN)
     Route: 042
     Dates: start: 20220209
  4. DOCETAXEL [Suspect]
     Active Substance: DOCETAXEL
     Indication: Hormone receptor positive breast cancer
     Dosage: 135 MILLIGRAM (EVERY 21 DAYS)
     Route: 042
     Dates: start: 20220302, end: 20220526
  5. TRASTUZUMAB [Suspect]
     Active Substance: TRASTUZUMAB
     Indication: Invasive ductal breast carcinoma
     Dosage: 550 MILLIGRAM (INDUCTION CHEMOTHERAPY REGIMEN)
     Route: 042
     Dates: start: 20220209
  6. TRASTUZUMAB [Suspect]
     Active Substance: TRASTUZUMAB
     Indication: Hormone receptor positive breast cancer
     Dosage: 410 MILLIGRAM (EVERY 21 DAYS)
     Route: 042
     Dates: start: 20220302, end: 20220526
  7. TRASTUZUMAB [Suspect]
     Active Substance: TRASTUZUMAB
     Dosage: 420 MILLIGRAM (EVERY 21 DAYS)
     Route: 042
     Dates: start: 20220718, end: 20230213
  8. PERTUZUMAB [Suspect]
     Active Substance: PERTUZUMAB
     Indication: Invasive ductal breast carcinoma
     Dosage: 840 MILLIGRAM (INDUCTION CHEMOTHERAPY REGIMEN)
     Route: 042
     Dates: start: 20220209
  9. PERTUZUMAB [Suspect]
     Active Substance: PERTUZUMAB
     Indication: Hormone receptor positive breast cancer
     Dosage: 420 MILLIGRAM (EVERY 21 DAYS)
     Route: 042
     Dates: start: 20220302, end: 20220526

REACTIONS (2)
  - Coronary artery stenosis [Recovered/Resolved]
  - Arteriosclerosis [Recovered/Resolved]

NARRATIVE: CASE EVENT DATE: 20241201
